FAERS Safety Report 4778154-7 (Version None)
Quarter: 2005Q3

REPORT INFORMATION
  Report Type: 
  Country: None (occurrence: None)
  Receive Date: 20050926
  Receipt Date: 20050919
  Transmission Date: 20060218
  Serious: Yes (Hospitalization)
  Sender: FDA-Public Use
  Company Number: 200518224GDDC

PATIENT
  Age: 76 Year
  Sex: Male

DRUGS (7)
  1. CLAFORAN [Suspect]
     Indication: CHOLECYSTITIS
     Route: 042
     Dates: start: 20040101, end: 20040101
  2. VOLTAREN [Suspect]
     Indication: CHOLECYSTITIS
     Route: 048
     Dates: start: 20040101, end: 20040101
  3. TAZOCIN [Suspect]
     Indication: CHOLECYSTITIS
     Route: 042
     Dates: start: 20040101, end: 20040101
  4. TAVEGYL [Suspect]
     Indication: CHOLECYSTITIS
     Route: 048
     Dates: start: 20040101, end: 20040101
  5. FASIGYN [Suspect]
     Indication: CHOLECYSTITIS
     Route: 048
     Dates: start: 20040101, end: 20040101
  6. CEFAMOX [Suspect]
     Indication: CHOLECYSTITIS
     Route: 048
     Dates: start: 20040101, end: 20040101
  7. KETOGAN NOVUM [Suspect]
     Indication: CHOLECYSTITIS
     Route: 048
     Dates: start: 20040101, end: 20040101

REACTIONS (1)
  - PAROSMIA [None]
